FAERS Safety Report 9707701 (Version 3)
Quarter: 2013Q4

REPORT INFORMATION
  Report Type: Spontaneous
  Country: CA (occurrence: CA)
  Receive Date: 20131125
  Receipt Date: 20131129
  Transmission Date: 20140711
  Serious: Yes (Other)
  Sender: FDA-Public Use
  Company Number: CA-SA-2013SA119195

PATIENT
  Age: 48 Year
  Sex: Female

DRUGS (4)
  1. FERRLECIT [Suspect]
     Indication: PRODUCT USED FOR UNKNOWN INDICATION
     Route: 042
     Dates: end: 20131105
  2. INSULIN [Concomitant]
     Indication: DIABETES MELLITUS
  3. RAMIPRIL [Concomitant]
  4. ASA [Concomitant]

REACTIONS (7)
  - Hypothermia [Recovered/Resolved]
  - Malaise [Recovered/Resolved]
  - Syncope [Recovered/Resolved]
  - Dyspnoea [Recovered/Resolved]
  - Chest pain [Recovered/Resolved]
  - Swelling [Recovered/Resolved]
  - Oedema [Recovered/Resolved]
